FAERS Safety Report 7589835-4 (Version None)
Quarter: 2011Q3

REPORT INFORMATION
  Report Type: 
  Country: None (occurrence: None)
  Receive Date: 20110705
  Receipt Date: 20110630
  Transmission Date: 20111222
  Serious: Yes (Death)
  Sender: FDA-Public Use
  Company Number: JP-SANOFI-AVENTIS-2011SA039885

PATIENT
  Age: 54 Year
  Sex: Female
  Weight: 48 kg

DRUGS (30)
  1. MAGNESIUM OXIDE [Concomitant]
     Route: 041
     Dates: end: 20110124
  2. OXALIPLATIN [Suspect]
     Indication: RECTAL CANCER
     Route: 041
     Dates: start: 20110112, end: 20110112
  3. FLUOROURACIL [Suspect]
     Dosage: 1500MG/BODY/D1-2
     Route: 041
     Dates: start: 20100510
  4. CANDESARTAN CILEXETIL [Concomitant]
     Route: 048
     Dates: end: 20110124
  5. OXALIPLATIN [Suspect]
     Dosage: 90MG/BODY CYCLE 11 AND 15 WITHOUT OXALIPLATIN.
     Route: 041
     Dates: start: 20100816
  6. FLUOROURACIL [Suspect]
     Dosage: 1250MG/BODY/D1-2
     Route: 041
     Dates: start: 20100329
  7. LEUCOVORIN CALCIUM [Concomitant]
     Dosage: 250MG/BODY
     Route: 041
     Dates: start: 20100510, end: 20100712
  8. PREDNISOLONE [Concomitant]
     Route: 048
     Dates: end: 20110124
  9. HYALEIN [Concomitant]
     Dosage: INTRAOSSEOUS
     Dates: end: 20110124
  10. OXALIPLATIN [Suspect]
     Dosage: 90MG/BODY
     Route: 041
     Dates: start: 20100329
  11. POLARAMINE [Concomitant]
     Indication: PREMEDICATION
     Route: 041
     Dates: start: 20100329, end: 20110112
  12. CEVIMELINE HYDROCHLORIDE [Concomitant]
     Route: 048
     Dates: end: 20110124
  13. FLUOROURACIL [Suspect]
     Dosage: 400MG/BODY
     Route: 040
     Dates: start: 20100816
  14. OXALIPLATIN [Suspect]
     Dosage: 100MG/BODY
     Route: 041
     Dates: start: 20100510
  15. FLUOROURACIL [Suspect]
     Dosage: 500MG/BODY
     Route: 040
     Dates: start: 20100510
  16. FLUOROURACIL [Suspect]
     Dosage: 1250MG/BODY/D1-2
     Route: 041
     Dates: start: 20100816
  17. LEUCOVORIN CALCIUM [Concomitant]
     Indication: RECTAL CANCER
     Dosage: 200MG/BODY
     Route: 041
     Dates: start: 20100329, end: 20100426
  18. LEVOTHYROXINE SODIUM [Concomitant]
     Route: 048
     Dates: end: 20110124
  19. DIFLUCAN [Concomitant]
     Route: 048
     Dates: end: 20110124
  20. FLUOROURACIL [Suspect]
     Indication: RECTAL CANCER
     Dosage: 400MG/BODY
     Route: 040
     Dates: start: 20100329
  21. RAMELTEON [Concomitant]
     Indication: PREMEDICATION
     Route: 041
     Dates: start: 20100329, end: 20100628
  22. DEXAMETHASONE SODIUM PHOSPHATE [Concomitant]
     Indication: PREMEDICATION
     Route: 041
     Dates: start: 20100329, end: 20110112
  23. ALOXI [Concomitant]
     Indication: PREMEDICATION
     Route: 041
     Dates: start: 20100712, end: 20110112
  24. SELBEX [Concomitant]
     Route: 048
     Dates: end: 20110124
  25. LOXONIN [Concomitant]
     Route: 048
     Dates: end: 20110124
  26. LEUCOVORIN CALCIUM [Concomitant]
     Dosage: 200MG/BODY
     Route: 041
     Dates: start: 20100816, end: 20110112
  27. ALENDRONATE SODIUM [Concomitant]
     Route: 048
     Dates: end: 20110124
  28. RABEPRAZOLE SODIUM [Concomitant]
     Route: 048
     Dates: end: 20110124
  29. SENNOSIDE A [Concomitant]
     Route: 048
     Dates: end: 20110124
  30. KETOPROFEN [Concomitant]
     Dosage: TRANS OSSEOUS ROUTE
     Dates: end: 20110124

REACTIONS (3)
  - MULTI-ORGAN FAILURE [None]
  - RENAL TUBULAR NECROSIS [None]
  - PNEUMONIA INFLUENZAL [None]
